FAERS Safety Report 5270585-4 (Version None)
Quarter: 2007Q1

REPORT INFORMATION
  Report Type: 
  Country: None (occurrence: None)
  Receive Date: 20070315
  Receipt Date: 20070306
  Transmission Date: 20070707
  Serious: Yes (Other)
  Sender: FDA-Public Use
  Company Number: JPI-P-000835

PATIENT
  Age: 30 Year
  Sex: Male

DRUGS (15)
  1. XYREM [Suspect]
     Indication: NARCOLEPSY
     Dosage: SEE IMAGE
     Route: 048
     Dates: start: 20050131
  2. XYREM [Suspect]
     Indication: SOMNOLENCE
     Dosage: SEE IMAGE
     Route: 048
     Dates: start: 20050131
  3. KLONOPIN [Concomitant]
  4. LAMICTAL [Concomitant]
  5. CYMBALTA [Concomitant]
  6. XANAX [Concomitant]
  7. ZYRTEC-D (CIRRUS /01318001/) [Concomitant]
  8. PROTONIX [Concomitant]
  9. SKELAXIN [Concomitant]
  10. LYRICA [Concomitant]
  11. CONCERTA [Concomitant]
  12. ZELNORM [Concomitant]
  13. RISPERIDONE [Concomitant]
  14. MULTIVITAMIN (MULTIVITAMIN) [Concomitant]
  15. CALCIUM (CALCIUM) [Concomitant]

REACTIONS (1)
  - SCHIZOPHRENIA [None]
